FAERS Safety Report 11334262 (Version 1)
Quarter: 2015Q3

REPORT INFORMATION
  Report Type: Spontaneous
  Country: US (occurrence: US)
  Receive Date: 20150803
  Receipt Date: 20150803
  Transmission Date: 20151125
  Serious: No
  Sender: FDA-Public Use
  Company Number: ALCN2015US003452

PATIENT
  Sex: Male

DRUGS (1)
  1. GENTEAL GEL [Suspect]
     Active Substance: CARBOXYMETHYLCELLULOSE SODIUM\HYPROMELLOSES
     Indication: EYE LUBRICATION THERAPY
     Dosage: 1 GTT, PRN
     Route: 047

REACTIONS (1)
  - Eye irritation [Recovered/Resolved]
